FAERS Safety Report 7649406-8 (Version None)
Quarter: 2011Q3

REPORT INFORMATION
  Report Type: 
  Country: None (occurrence: None)
  Receive Date: 20110802
  Receipt Date: 20110726
  Transmission Date: 20111222
  Serious: Yes (Life-Threatening, Hospitalization)
  Sender: FDA-Public Use
  Company Number: US-JNJFOC-20110512146

PATIENT
  Age: 53 Year
  Sex: Female

DRUGS (5)
  1. LYRICA [Concomitant]
     Route: 065
  2. NUCYNTA [Suspect]
     Indication: LUMBAR RADICULOPATHY
     Route: 065
     Dates: start: 20110524, end: 20110524
  3. TOPAMAX [Concomitant]
     Route: 048
  4. LORTAB [Concomitant]
     Indication: PAIN
     Route: 065
  5. NUCYNTA [Suspect]
     Indication: PAIN
     Route: 065
     Dates: start: 20110524, end: 20110524

REACTIONS (1)
  - ANAPHYLACTIC REACTION [None]
